FAERS Safety Report 7759347-3 (Version None)
Quarter: 2011Q3

REPORT INFORMATION
  Report Type: 
  Country: None (occurrence: None)
  Receive Date: 20110919
  Receipt Date: 20110909
  Transmission Date: 20111222
  Serious: Yes (Other)
  Sender: FDA-Public Use
  Company Number: US-JNJFOC-20110905306

PATIENT
  Age: 4 Year
  Sex: Male
  Weight: 18.14 kg

DRUGS (2)
  1. CHILDREN'S MOTRIN [Suspect]
     Route: 048
  2. CHILDREN'S MOTRIN [Suspect]
     Indication: PYREXIA
     Route: 048
     Dates: start: 20110908, end: 20110908

REACTIONS (2)
  - PRODUCT CONTAMINATION MICROBIAL [None]
  - CONVULSION [None]
